FAERS Safety Report 7989712-0 (Version None)
Quarter: 2011Q4

REPORT INFORMATION
  Report Type: 
  Country: None (occurrence: None)
  Receive Date: 20111219
  Receipt Date: 20111206
  Transmission Date: 20120403
  Serious: Yes (Hospitalization, Other)
  Sender: FDA-Public Use
  Company Number: US-ELI_LILLY_AND_COMPANY-US201011001073

PATIENT
  Age: 62 Year
  Sex: Female

DRUGS (6)
  1. FORTEO [Suspect]
     Dosage: 20 UG, QD
     Route: 065
  2. IRON DEXTRAN [Concomitant]
  3. FORTEO [Suspect]
     Dosage: 20 UG, QD
     Route: 065
  4. VITAMIN TAB [Concomitant]
  5. XANAX [Concomitant]
     Indication: NERVOUSNESS
  6. FORTEO [Suspect]
     Indication: OSTEOPOROSIS
     Dosage: 20 UG, QD
     Route: 065
     Dates: start: 20100101

REACTIONS (6)
  - PNEUMONIA [None]
  - BRONCHITIS [None]
  - HEADACHE [None]
  - DIZZINESS [None]
  - POOR QUALITY SLEEP [None]
  - SKIN CANCER [None]
